FAERS Safety Report 9613190 (Version 1)
Quarter: 2013Q4

REPORT INFORMATION
  Report Type: Spontaneous
  Country: IT (occurrence: IT)
  Receive Date: 20131010
  Receipt Date: 20131010
  Transmission Date: 20140711
  Serious: Yes (Hospitalization, Other)
  Sender: FDA-Public Use
  Company Number: IT-JHP PHARMACEUTICALS, LLC-JHP201300595

PATIENT
  Age: 66 Year
  Sex: Female

DRUGS (2)
  1. ADRENALIN [Suspect]
     Indication: LOCAL ANAESTHESIA
     Dosage: 0.4 MG, SINGLE INFILTRATION INTO THE NASAL AREA
     Route: 050
  2. CARBOCAINE [Suspect]
     Indication: LOCAL ANAESTHESIA
     Dosage: 80 MG, SINGLE INFILTRATION INTO THE NASAL AREA
     Route: 050

REACTIONS (1)
  - Stress cardiomyopathy [Recovered/Resolved]
